FAERS Safety Report 23823246 (Version 12)
Quarter: 2025Q1

REPORT INFORMATION
  Report Type: Other
  Country: GB (occurrence: GB)
  Receive Date: 20240507
  Receipt Date: 20250311
  Transmission Date: 20250409
  Serious: Yes (Other)
  Sender: MACLEODS
  Company Number: GB-SHIRE-CA201925146

PATIENT

DRUGS (277)
  1. CANDESARTAN [Suspect]
     Active Substance: CANDESARTAN
     Indication: Colitis ulcerative
     Route: 048
     Dates: start: 20230412
  2. CANDESARTAN [Suspect]
     Active Substance: CANDESARTAN
     Dosage: 6 DOSAGE FORM, 1 DOSE PER 1D
     Route: 065
  3. DAPAGLIFLOZIN [Suspect]
     Active Substance: DAPAGLIFLOZIN
     Indication: Cardiac failure chronic
     Route: 065
  4. ESOMEPRAZOLE [Suspect]
     Active Substance: ESOMEPRAZOLE
     Indication: Gastritis
     Route: 065
  5. LEVOTHYROXINE [Suspect]
     Active Substance: LEVOTHYROXINE
     Indication: Product used for unknown indication
     Dosage: 1 DOSE PER 1 D
     Route: 065
  6. LEVOTHYROXINE [Suspect]
     Active Substance: LEVOTHYROXINE
     Route: 065
  7. METFORMIN [Suspect]
     Active Substance: METFORMIN HYDROCHLORIDE
     Indication: Product used for unknown indication
     Route: 065
  8. METFORMIN [Suspect]
     Active Substance: METFORMIN HYDROCHLORIDE
     Dosage: PROLONGED-RELEASE TABLET, 500 MILLIGRAM, 2 DOSE PER 1 D
     Route: 065
  9. ROSUVASTATIN [Suspect]
     Active Substance: ROSUVASTATIN
     Indication: Blood cholesterol increased
     Route: 065
  10. ROSUVASTATIN [Suspect]
     Active Substance: ROSUVASTATIN
     Dosage: 10 MILLIGRAM, 1 DOSE PER 1 D
     Route: 065
  11. ASPIRIN [Suspect]
     Active Substance: ASPIRIN
     Indication: Product used for unknown indication
     Route: 065
  12. ASPIRIN [Suspect]
     Active Substance: ASPIRIN
     Route: 065
  13. OMEPRAZOLE [Suspect]
     Active Substance: OMEPRAZOLE
     Indication: Gastritis
     Route: 065
  14. OMEPRAZOLE [Suspect]
     Active Substance: OMEPRAZOLE
     Route: 065
  15. OMEPRAZOLE [Suspect]
     Active Substance: OMEPRAZOLE
     Route: 065
  16. ACETAMINOPHEN [Suspect]
     Active Substance: ACETAMINOPHEN
     Indication: Ill-defined disorder
     Dosage: 500 MILLIGRAM, 4 DOSE PER 1 D
     Route: 065
  17. ACETAMINOPHEN [Suspect]
     Active Substance: ACETAMINOPHEN
     Route: 065
  18. ACETAMINOPHEN [Suspect]
     Active Substance: ACETAMINOPHEN
     Dosage: 500 MILLIGRAM, 4 DOSE PER 1 D
     Route: 065
  19. BUDESONIDE [Suspect]
     Active Substance: BUDESONIDE
     Indication: Colitis ulcerative
     Dosage: 1 DOSAGE FORM, QID
     Route: 048
     Dates: start: 201707
  20. BUDESONIDE [Suspect]
     Active Substance: BUDESONIDE
     Dosage: 8 DOSAGE FORM, Q8WK
     Route: 048
     Dates: start: 200707
  21. BUDESONIDE [Suspect]
     Active Substance: BUDESONIDE
     Dosage: 8 DOSAGE FORM, Q8WK
     Route: 065
     Dates: start: 200707
  22. BUDESONIDE [Suspect]
     Active Substance: BUDESONIDE
     Dosage: 1 DOSAGE FORM, 1 DOSE PER 8W
     Route: 048
     Dates: start: 201707
  23. BUDESONIDE [Suspect]
     Active Substance: BUDESONIDE
     Route: 065
     Dates: start: 200707
  24. BUDESONIDE [Suspect]
     Active Substance: BUDESONIDE
     Dosage: 8 DOSAGE FORM, Q8WK
     Route: 048
     Dates: start: 200707
  25. BUDESONIDE [Suspect]
     Active Substance: BUDESONIDE
     Dosage: 245 DOSAGE FORM, 1 DOSE PER 1 D
     Route: 048
     Dates: start: 200707
  26. BUDESONIDE [Suspect]
     Active Substance: BUDESONIDE
     Route: 048
     Dates: start: 200707
  27. ALBENDAZOLE [Suspect]
     Active Substance: ALBENDAZOLE
     Indication: Colitis ulcerative
     Route: 042
     Dates: start: 2017, end: 2017
  28. ALBENDAZOLE [Suspect]
     Active Substance: ALBENDAZOLE
     Indication: Deep vein thrombosis
     Route: 042
     Dates: start: 2021
  29. ALBENDAZOLE [Suspect]
     Active Substance: ALBENDAZOLE
     Route: 048
  30. CHOLECALCIFEROL [Suspect]
     Active Substance: CHOLECALCIFEROL
     Indication: Product used for unknown indication
     Route: 065
  31. HYDROCORTISONE [Suspect]
     Active Substance: HYDROCORTISONE
     Indication: Colitis ulcerative
     Dosage: 8 DOSAGE FORM, Q8WK
     Route: 048
     Dates: start: 201807
  32. HYDROCORTISONE [Suspect]
     Active Substance: HYDROCORTISONE
     Indication: Crohn^s disease
     Dosage: 1 DOSAGE FORM, QD
     Route: 048
     Dates: start: 201807
  33. HYDROCORTISONE [Suspect]
     Active Substance: HYDROCORTISONE
     Route: 042
  34. HYDROCORTISONE [Suspect]
     Active Substance: HYDROCORTISONE
     Dosage: 1 DOSE PER 1D
     Route: 065
  35. HYDROCORTISONE [Suspect]
     Active Substance: HYDROCORTISONE
     Dosage: 1 DOSE PER 6W
     Route: 065
  36. HYDROCORTISONE [Suspect]
     Active Substance: HYDROCORTISONE
     Dosage: 8 MILLIGRAM, 1 DOSE PER 1W
     Route: 048
  37. HYDROCORTISONE [Suspect]
     Active Substance: HYDROCORTISONE
     Dosage: 6 MILLIGRAM, 1 DOSE PER 1W
     Route: 048
  38. HYDROCORTISONE [Suspect]
     Active Substance: HYDROCORTISONE
     Dosage: 1 DOSAGE FORM, 1 DOSE PER 1D
     Route: 048
     Dates: start: 201807
  39. HYDROCORTISONE [Suspect]
     Active Substance: HYDROCORTISONE
     Dosage: 3 DOSAGE FORM, 2 DOSE PER 1D
     Route: 048
  40. HYDROCORTISONE [Suspect]
     Active Substance: HYDROCORTISONE
     Route: 065
  41. WARFARIN [Suspect]
     Active Substance: WARFARIN
     Indication: Colitis ulcerative
     Dosage: 8 DOSAGE FORM, Q8WK
     Route: 048
     Dates: start: 201707
  42. WARFARIN [Suspect]
     Active Substance: WARFARIN
     Indication: Deep vein thrombosis
     Dosage: 1 DOSAGE FORM, QD
     Route: 048
     Dates: start: 201707
  43. WARFARIN [Suspect]
     Active Substance: WARFARIN
     Route: 048
     Dates: start: 2009, end: 2009
  44. WARFARIN [Suspect]
     Active Substance: WARFARIN
     Route: 065
     Dates: end: 2019
  45. WARFARIN [Suspect]
     Active Substance: WARFARIN
     Route: 065
     Dates: start: 2009
  46. WARFARIN [Suspect]
     Active Substance: WARFARIN
     Route: 065
  47. WARFARIN [Suspect]
     Active Substance: WARFARIN
     Route: 065
     Dates: start: 2019
  48. WARFARIN [Suspect]
     Active Substance: WARFARIN
     Dosage: 1 DOSAGE FORM, 1 DOSE PER 8W
     Route: 048
     Dates: start: 201707
  49. WARFARIN [Suspect]
     Active Substance: WARFARIN
     Dosage: 8 DOSAGE FORM, 1 DOSE PER 1 D
     Route: 048
  50. CORTIFOAM [Suspect]
     Active Substance: HYDROCORTISONE ACETATE
     Indication: Colitis ulcerative
     Dosage: 1 DOSAGE FORM, 1 DOSE PER 1D
     Route: 048
     Dates: start: 201707
  51. CORTIFOAM [Suspect]
     Active Substance: HYDROCORTISONE ACETATE
     Dosage: 8 DOSAGE FORM, Q8WK
     Route: 048
     Dates: start: 201707
  52. CORTIFOAM [Suspect]
     Active Substance: HYDROCORTISONE ACETATE
     Dosage: 1 DOSAGE FORM, 1 DOSE PER 1D
     Route: 065
  53. CORTIFOAM [Suspect]
     Active Substance: HYDROCORTISONE ACETATE
     Dosage: 8 DOSAGE FORM, Q8WK
     Route: 065
  54. CORTIFOAM [Suspect]
     Active Substance: HYDROCORTISONE ACETATE
     Dosage: 1 DOSE PER 8W
     Route: 065
  55. CORTIFOAM [Suspect]
     Active Substance: HYDROCORTISONE ACETATE
     Route: 048
  56. BUDESONIDE [Suspect]
     Active Substance: BUDESONIDE
     Indication: Colitis ulcerative
     Dosage: 8 DOSAGE FORM, Q8WK
     Route: 048
     Dates: start: 200707
  57. BUDESONIDE [Suspect]
     Active Substance: BUDESONIDE
     Dosage: 1 DOSAGE FORM, 1 DOSE PER 1D
     Route: 048
  58. BUDESONIDE [Suspect]
     Active Substance: BUDESONIDE
     Dosage: 1 DOSE PER 8W
     Route: 048
  59. ENTYVIO [Suspect]
     Active Substance: VEDOLIZUMAB
     Indication: Colitis ulcerative
     Route: 048
     Dates: start: 2017, end: 2017
  60. ENTYVIO [Suspect]
     Active Substance: VEDOLIZUMAB
     Indication: Deep vein thrombosis
     Route: 042
     Dates: start: 2017, end: 2017
  61. ENTYVIO [Suspect]
     Active Substance: VEDOLIZUMAB
     Route: 065
  62. ENTYVIO [Suspect]
     Active Substance: VEDOLIZUMAB
     Dosage: 1 DOSAGE FORM, 1 DOSE PER 1D
     Route: 048
  63. ENTYVIO [Suspect]
     Active Substance: VEDOLIZUMAB
     Dosage: 8 DOSAGE FORM, 1 DOSE PER 8W
     Route: 048
  64. ENTYVIO [Suspect]
     Active Substance: VEDOLIZUMAB
     Route: 065
  65. MESALAMINE [Suspect]
     Active Substance: MESALAMINE
     Indication: Colitis ulcerative
     Dosage: 6 DOSAGE FORM, QD
     Route: 065
     Dates: start: 20161001
  66. MESALAMINE [Suspect]
     Active Substance: MESALAMINE
     Dosage: 2.4 GRAM, QD
     Route: 065
     Dates: start: 20161001
  67. MESALAMINE [Suspect]
     Active Substance: MESALAMINE
     Route: 065
     Dates: start: 2017, end: 201709
  68. MESALAMINE [Suspect]
     Active Substance: MESALAMINE
     Dosage: 3 DOSAGE FORM, BID
     Route: 065
     Dates: start: 201610
  69. MESALAMINE [Suspect]
     Active Substance: MESALAMINE
     Route: 065
     Dates: start: 20170101, end: 20170901
  70. MESALAMINE [Suspect]
     Active Substance: MESALAMINE
     Route: 065
     Dates: start: 20170101, end: 20170901
  71. MESALAMINE [Suspect]
     Active Substance: MESALAMINE
     Route: 065
     Dates: start: 20160101, end: 20161001
  72. MESALAMINE [Suspect]
     Active Substance: MESALAMINE
     Route: 048
     Dates: start: 20160101, end: 20161001
  73. MESALAMINE [Suspect]
     Active Substance: MESALAMINE
     Dosage: 4.8 GRAM, QD
     Route: 065
     Dates: start: 20161001
  74. MESALAMINE [Suspect]
     Active Substance: MESALAMINE
     Route: 065
     Dates: start: 201709, end: 201709
  75. MESALAMINE [Suspect]
     Active Substance: MESALAMINE
     Route: 048
     Dates: start: 20161001, end: 20161001
  76. MESALAMINE [Suspect]
     Active Substance: MESALAMINE
     Route: 065
  77. MESALAMINE [Suspect]
     Active Substance: MESALAMINE
     Route: 065
  78. MESALAMINE [Suspect]
     Active Substance: MESALAMINE
     Indication: Colitis ulcerative
     Route: 048
     Dates: start: 20160101, end: 20161001
  79. MESALAMINE [Suspect]
     Active Substance: MESALAMINE
     Route: 065
  80. MESALAMINE [Suspect]
     Active Substance: MESALAMINE
     Route: 048
  81. MESALAMINE [Suspect]
     Active Substance: MESALAMINE
     Dosage: 6 DOSAGE FORM, 1 DOSE PER 1D
     Route: 065
  82. MESALAMINE [Suspect]
     Active Substance: MESALAMINE
     Dosage: 8 DOSAGE FORM, 1 DOSE PER 8W
     Route: 048
  83. MESALAMINE [Suspect]
     Active Substance: MESALAMINE
     Dosage: 2.4 GRAM, 1 DOSE PER 1D
     Route: 065
  84. MESALAMINE [Suspect]
     Active Substance: MESALAMINE
     Dosage: 3 GRAM, 1 DOSE PER 1D
     Route: 065
  85. MESALAMINE [Suspect]
     Active Substance: MESALAMINE
     Route: 048
  86. MESALAMINE [Suspect]
     Active Substance: MESALAMINE
     Route: 048
  87. MESALAMINE [Suspect]
     Active Substance: MESALAMINE
     Route: 065
  88. MESALAMINE [Suspect]
     Active Substance: MESALAMINE
     Route: 048
  89. MESALAMINE [Suspect]
     Active Substance: MESALAMINE
     Route: 048
  90. MESALAMINE [Suspect]
     Active Substance: MESALAMINE
     Route: 048
  91. MESALAMINE [Suspect]
     Active Substance: MESALAMINE
     Route: 048
  92. MESALAMINE [Suspect]
     Active Substance: MESALAMINE
     Dosage: 6 DOSAGE FORM, 2 DOSE PER 1D
     Route: 065
  93. MESALAMINE [Suspect]
     Active Substance: MESALAMINE
     Route: 065
  94. MESALAMINE [Suspect]
     Active Substance: MESALAMINE
     Route: 065
  95. MESALAMINE [Suspect]
     Active Substance: MESALAMINE
     Indication: Colitis ulcerative
     Route: 065
     Dates: start: 201601, end: 201610
  96. MESALAMINE [Suspect]
     Active Substance: MESALAMINE
     Route: 048
     Dates: start: 20160101, end: 201610
  97. MESALAMINE [Suspect]
     Active Substance: MESALAMINE
     Route: 048
     Dates: start: 20160101, end: 20161001
  98. MESALAMINE [Suspect]
     Active Substance: MESALAMINE
     Route: 048
     Dates: start: 20160101, end: 20160101
  99. MESALAMINE [Suspect]
     Active Substance: MESALAMINE
     Dosage: 50 MILLIGRAM, 1 DOSE PER 1 D
     Route: 065
  100. MESALAMINE [Suspect]
     Active Substance: MESALAMINE
     Dosage: 3 DOSAGE FORM, 2 DOSE PER 1 D
     Route: 065
  101. MESALAMINE [Suspect]
     Active Substance: MESALAMINE
     Dosage: 6 DOSAGE FORM, 1 DOSE PER 1 D
     Route: 065
  102. MESALAMINE [Suspect]
     Active Substance: MESALAMINE
     Dosage: 40 MILLIGRAM, 1 DOSE PER 1 D
     Route: 065
  103. MESALAMINE [Suspect]
     Active Substance: MESALAMINE
     Route: 065
  104. MESALAMINE [Suspect]
     Active Substance: MESALAMINE
     Dosage: 1 DOSAGE FORM, 1 DOSE PER 1 D
     Route: 065
  105. MESALAMINE [Suspect]
     Active Substance: MESALAMINE
     Dosage: 30 DOSAGE FORM, 2 DOSE PER 1 D
     Route: 065
  106. MESALAMINE [Suspect]
     Active Substance: MESALAMINE
     Dosage: 3 GRAM, 1 DOSE PER 1 D
     Route: 065
  107. MESALAMINE [Suspect]
     Active Substance: MESALAMINE
     Dosage: 24 DOSAGE FORM, 1 DOSE PER 1 D
     Route: 065
  108. MESALAMINE [Suspect]
     Active Substance: MESALAMINE
     Dosage: 4.8 GRAM, 1 DOSE PER 1 D
     Route: 065
  109. VEDOLIZUMAB [Suspect]
     Active Substance: VEDOLIZUMAB
     Indication: Deep vein thrombosis
     Route: 042
     Dates: start: 2017, end: 2017
  110. VEDOLIZUMAB [Suspect]
     Active Substance: VEDOLIZUMAB
     Indication: Colitis ulcerative
     Dosage: 1 DOSAGE FORM, QD
     Route: 048
  111. ADALIMUMAB [Suspect]
     Active Substance: ADALIMUMAB
     Indication: Crohn^s disease
     Route: 048
     Dates: start: 201707
  112. ADALIMUMAB [Suspect]
     Active Substance: ADALIMUMAB
     Route: 058
  113. ADALIMUMAB [Suspect]
     Active Substance: ADALIMUMAB
     Route: 048
     Dates: start: 201707
  114. ADALIMUMAB [Suspect]
     Active Substance: ADALIMUMAB
     Route: 065
  115. ADALIMUMAB [Suspect]
     Active Substance: ADALIMUMAB
     Route: 058
  116. INFLECTRA [Suspect]
     Active Substance: INFLIXIMAB-DYYB
     Indication: Crohn^s disease
     Dosage: 5 MILLIGRAM/KILOGRAM, Q8WK
     Route: 042
     Dates: start: 20171019
  117. INFLECTRA [Suspect]
     Active Substance: INFLIXIMAB-DYYB
     Indication: Colitis ulcerative
     Route: 042
     Dates: start: 20170101, end: 20170901
  118. INFLECTRA [Suspect]
     Active Substance: INFLIXIMAB-DYYB
     Route: 042
     Dates: start: 201709
  119. INFLECTRA [Suspect]
     Active Substance: INFLIXIMAB-DYYB
     Dosage: 5 MILLIGRAM/KILOGRAM, Q8WK
     Route: 042
     Dates: start: 20170101, end: 20170901
  120. INFLECTRA [Suspect]
     Active Substance: INFLIXIMAB-DYYB
     Dosage: 7 MILLIGRAM/KILOGRAM, 1 DOSE PER 8W
     Route: 042
  121. INFLECTRA [Suspect]
     Active Substance: INFLIXIMAB-DYYB
     Route: 048
  122. INFLECTRA [Suspect]
     Active Substance: INFLIXIMAB-DYYB
     Dosage: 1 DOSE PER 8W
     Route: 048
  123. INFLECTRA [Suspect]
     Active Substance: INFLIXIMAB-DYYB
     Dosage: 120 MILLIGRAM, 1 DOSE PER 8W
     Route: 042
  124. INFLECTRA [Suspect]
     Active Substance: INFLIXIMAB-DYYB
     Route: 042
  125. PREDNISONE [Suspect]
     Active Substance: PREDNISONE
     Indication: Colitis ulcerative
     Route: 065
     Dates: start: 2017
  126. PREDNISONE [Suspect]
     Active Substance: PREDNISONE
     Route: 065
     Dates: start: 2009, end: 2009
  127. PREDNISONE [Suspect]
     Active Substance: PREDNISONE
     Dosage: 1 DOSE PER 1D
     Route: 065
  128. PREDNISONE [Suspect]
     Active Substance: PREDNISONE
     Dosage: 40 MILLIGRAM, 1 DOSE PER 1D
     Route: 065
  129. SULFASALAZINE [Suspect]
     Active Substance: SULFASALAZINE
     Indication: Colitis ulcerative
     Route: 065
     Dates: start: 2009, end: 2016
  130. SULFASALAZINE [Suspect]
     Active Substance: SULFASALAZINE
     Indication: Arthritis
     Route: 065
     Dates: start: 201709, end: 201709
  131. SULFASALAZINE [Suspect]
     Active Substance: SULFASALAZINE
     Route: 065
     Dates: start: 20090101, end: 20160101
  132. SULFASALAZINE [Suspect]
     Active Substance: SULFASALAZINE
     Route: 065
     Dates: start: 20160101, end: 20160101
  133. SULFASALAZINE [Suspect]
     Active Substance: SULFASALAZINE
     Dosage: 3 MILLIGRAM, 1 DOSE PER 1D
     Route: 048
  134. SULFASALAZINE [Suspect]
     Active Substance: SULFASALAZINE
     Dosage: 5 MILLIGRAM, 1 DOSE PER 1D
     Route: 048
  135. LISDEXAMFETAMINE DIMESYLATE [Suspect]
     Active Substance: LISDEXAMFETAMINE DIMESYLATE
     Indication: Product used for unknown indication
     Route: 065
  136. AZD-1222 [Suspect]
     Active Substance: AZD-1222
     Indication: COVID-19 immunisation
     Route: 065
     Dates: start: 20210215, end: 20210215
  137. AZD-1222 [Suspect]
     Active Substance: AZD-1222
     Route: 065
     Dates: start: 20210416, end: 20210416
  138. AZD-1222 [Suspect]
     Active Substance: AZD-1222
     Route: 065
     Dates: start: 20210318, end: 20210318
  139. AZD-1222 [Suspect]
     Active Substance: AZD-1222
     Route: 065
     Dates: start: 20210423, end: 20210423
  140. AZD-1222 [Suspect]
     Active Substance: AZD-1222
     Route: 065
     Dates: start: 20210521, end: 20210521
  141. AZD-1222 [Suspect]
     Active Substance: AZD-1222
     Route: 065
     Dates: start: 20210204, end: 20210204
  142. AZD-1222 [Suspect]
     Active Substance: AZD-1222
     Route: 065
     Dates: start: 20210508, end: 20210508
  143. AZD-1222 [Suspect]
     Active Substance: AZD-1222
     Route: 065
     Dates: start: 20210130, end: 20210130
  144. AZD-1222 [Suspect]
     Active Substance: AZD-1222
     Route: 065
     Dates: start: 20210713, end: 20210713
  145. AZD-1222 [Suspect]
     Active Substance: AZD-1222
     Route: 065
     Dates: start: 2019, end: 2019
  146. AZD-1222 [Suspect]
     Active Substance: AZD-1222
     Route: 065
     Dates: start: 20210319, end: 20210319
  147. AZD-1222 [Suspect]
     Active Substance: AZD-1222
     Route: 065
     Dates: start: 2019, end: 2019
  148. MEBEVERINE [Suspect]
     Active Substance: MEBEVERINE
     Indication: Product used for unknown indication
     Route: 065
  149. MEBEVERINE [Suspect]
     Active Substance: MEBEVERINE
     Dosage: 200 MILLIGRAM, 2 DOSE PER 1 D
     Route: 065
  150. GABAPENTIN [Suspect]
     Active Substance: GABAPENTIN
     Indication: Product used for unknown indication
     Route: 065
  151. GABAPENTIN [Suspect]
     Active Substance: GABAPENTIN
     Route: 065
  152. OXYCODONE [Suspect]
     Active Substance: OXYCODONE
     Indication: Product used for unknown indication
     Route: 065
  153. OXYCODONE [Suspect]
     Active Substance: OXYCODONE
     Dosage: 5 MILLIGRAM, 2 DOSE PER 1 D
     Route: 065
  154. FUROSEMIDE [Suspect]
     Active Substance: FUROSEMIDE
     Indication: Product used for unknown indication
     Route: 065
  155. PARA-AMINOSALICYLIC ACID [Suspect]
     Active Substance: AMINOSALICYLIC ACID
     Indication: Deep vein thrombosis
     Route: 048
  156. PARA-AMINOSALICYLIC ACID [Suspect]
     Active Substance: AMINOSALICYLIC ACID
     Indication: Colitis ulcerative
  157. ASACOL [Suspect]
     Active Substance: MESALAMINE
     Indication: Colitis ulcerative
     Route: 065
     Dates: start: 20161001
  158. ASACOL [Suspect]
     Active Substance: MESALAMINE
     Route: 065
     Dates: start: 20161001
  159. ASACOL [Suspect]
     Active Substance: MESALAMINE
     Dosage: Q12H
     Route: 065
     Dates: start: 20161001
  160. ASACOL [Suspect]
     Active Substance: MESALAMINE
     Route: 065
     Dates: start: 20161001
  161. ASACOL [Suspect]
     Active Substance: MESALAMINE
     Route: 065
     Dates: start: 20161001
  162. ASACOL [Suspect]
     Active Substance: MESALAMINE
     Dosage: 6 DOSAGE FORM, 2 DOSE PER 1 D
     Route: 065
  163. ASACOL [Suspect]
     Active Substance: MESALAMINE
     Route: 065
  164. ASACOL [Suspect]
     Active Substance: MESALAMINE
     Dosage: 1 DOSAGE FORM, 1 DOSE PER 1 D
     Route: 048
  165. ASACOL [Suspect]
     Active Substance: MESALAMINE
     Dosage: 3 DOSAGE FORM, 2 DOSE PER 1 D
     Route: 048
  166. ASACOL [Suspect]
     Active Substance: MESALAMINE
     Dosage: 3 DOSAGE FORM, 1 DOSE PER 12HR
     Route: 065
  167. ASACOL [Suspect]
     Active Substance: MESALAMINE
     Route: 065
  168. TOZINAMERAN [Suspect]
     Active Substance: TOZINAMERAN
     Indication: Product used for unknown indication
     Route: 065
     Dates: start: 20220322, end: 20220322
  169. HUMIRA [Suspect]
     Active Substance: ADALIMUMAB
     Indication: Deep vein thrombosis
     Route: 065
  170. HUMIRA [Suspect]
     Active Substance: ADALIMUMAB
     Indication: Crohn^s disease
     Route: 048
     Dates: start: 201707
  171. HUMIRA [Suspect]
     Active Substance: ADALIMUMAB
     Indication: Colitis ulcerative
     Dosage: 1 DOSE PER 8W
     Route: 058
  172. HUMIRA [Suspect]
     Active Substance: ADALIMUMAB
     Route: 065
  173. FELODIPINE [Suspect]
     Active Substance: FELODIPINE
     Indication: Hypertension
     Route: 048
  174. FELODIPINE [Suspect]
     Active Substance: FELODIPINE
     Dosage: 2.5 MILLIGRAM, 2 DOSE PER 1 D
     Route: 048
  175. FELODIPINE [Suspect]
     Active Substance: FELODIPINE
     Dosage: 2.5 MILLIGRAM, 2 DOSE PER 1 D
     Route: 048
  176. EPINEPHRINE HYDROCHLORIDE [Suspect]
     Active Substance: EPINEPHRINE HYDROCHLORIDE
     Indication: Product used for unknown indication
     Route: 065
  177. COMIRNATY (TOZINAMERAN) [Suspect]
     Active Substance: TOZINAMERAN
     Indication: Product used for unknown indication
     Route: 065
  178. MESALAMINE [Suspect]
     Active Substance: MESALAMINE
     Indication: Product used for unknown indication
     Route: 065
  179. VYVANSE [Suspect]
     Active Substance: LISDEXAMFETAMINE DIMESYLATE
     Indication: Attention deficit hyperactivity disorder
     Route: 048
  180. DESOXIMETASONE [Suspect]
     Active Substance: DESOXIMETASONE
     Indication: Colitis ulcerative
     Route: 048
  181. DESOXIMETASONE [Suspect]
     Active Substance: DESOXIMETASONE
     Indication: Crohn^s disease
     Route: 048
  182. DESOXIMETASONE [Suspect]
     Active Substance: DESOXIMETASONE
     Route: 048
  183. DESOXIMETASONE [Suspect]
     Active Substance: DESOXIMETASONE
     Route: 065
  184. DESOXIMETASONE [Suspect]
     Active Substance: DESOXIMETASONE
     Route: 048
  185. DESOXIMETASONE [Suspect]
     Active Substance: DESOXIMETASONE
     Route: 048
  186. CRESTOR [Suspect]
     Active Substance: ROSUVASTATIN CALCIUM
     Indication: Blood cholesterol increased
     Route: 065
  187. ASACOL [Suspect]
     Active Substance: MESALAMINE
     Indication: Colitis ulcerative
     Dosage: 4.8 G, EVERY 24 HOURS
     Route: 065
  188. ASACOL [Suspect]
     Active Substance: MESALAMINE
     Dosage: 6 DOSAGE FORM, 1 DOSE PER 1 D, 3 GRAM, EVERY 12 HOURS
     Route: 048
  189. ASACOL [Suspect]
     Active Substance: MESALAMINE
     Dosage: 6 DOSAGE FORM, 1 DOSE PER 1 D
     Route: 065
  190. ASACOL [Suspect]
     Active Substance: MESALAMINE
     Dosage: 3 GRAM, 1 DOSE PER 1 D
     Route: 065
  191. ASACOL [Suspect]
     Active Substance: MESALAMINE
     Dosage: 40 MILLIGRAM, 1 DOSE PER 1 D
     Route: 065
  192. ASACOL [Suspect]
     Active Substance: MESALAMINE
     Route: 065
  193. ASACOL [Suspect]
     Active Substance: MESALAMINE
     Dosage: 4.8 GRAM, 1 DOSE PER 1 D
     Route: 065
  194. ASACOL [Suspect]
     Active Substance: MESALAMINE
     Route: 065
  195. ASACOL [Suspect]
     Active Substance: MESALAMINE
     Dosage: 3 GRAM, 2 EVERY 1 DAYS
     Route: 065
  196. ASACOL [Suspect]
     Active Substance: MESALAMINE
     Dosage: 3 DOSAGE FORM, 2 DOSE PER 1 D
     Route: 065
  197. ASACOL [Suspect]
     Active Substance: MESALAMINE
     Route: 065
  198. ASACOL [Suspect]
     Active Substance: MESALAMINE
     Dosage: 3 DOSAGE FORM, 1 DOSE PER 12HR
     Route: 065
  199. MESALAMINE [Suspect]
     Active Substance: MESALAMINE
     Indication: Colitis ulcerative
     Dosage: 2.4 GRAM, 1 DOSE PER 1D
     Route: 065
  200. MESALAMINE [Suspect]
     Active Substance: MESALAMINE
     Route: 065
     Dates: start: 2017, end: 2017
  201. MESALAMINE [Suspect]
     Active Substance: MESALAMINE
     Route: 065
     Dates: start: 20161001
  202. MESALAMINE [Suspect]
     Active Substance: MESALAMINE
     Route: 065
  203. MESALAMINE [Suspect]
     Active Substance: MESALAMINE
     Route: 065
  204. MESALAMINE [Suspect]
     Active Substance: MESALAMINE
     Route: 065
  205. MESALAMINE [Suspect]
     Active Substance: MESALAMINE
     Route: 065
  206. MESALAMINE [Suspect]
     Active Substance: MESALAMINE
     Dosage: 3 GRAM, 1 DOSE PER 1D
     Route: 065
  207. MESALAMINE [Suspect]
     Active Substance: MESALAMINE
     Route: 065
  208. MESALAMINE [Suspect]
     Active Substance: MESALAMINE
     Route: 065
  209. MESALAMINE [Suspect]
     Active Substance: MESALAMINE
     Route: 065
  210. CALTRATE WITH VITAMIN D [Suspect]
     Active Substance: CALCIUM CARBONATE\CHOLECALCIFEROL
     Indication: Product used for unknown indication
     Route: 065
  211. ACETAMINOPHEN [Suspect]
     Active Substance: ACETAMINOPHEN
     Indication: Ill-defined disorder
     Route: 065
  212. ACETAMINOPHEN [Suspect]
     Active Substance: ACETAMINOPHEN
     Route: 065
  213. CORTISONE [Suspect]
     Active Substance: CORTISONE
     Indication: Colitis ulcerative
     Dosage: 8 DOSAGE FORM, 1 DOSE PER 8W
     Route: 048
  214. CORTISONE [Suspect]
     Active Substance: CORTISONE
     Route: 048
  215. CORTISONE [Suspect]
     Active Substance: CORTISONE
     Route: 065
  216. CORTISONE [Suspect]
     Active Substance: CORTISONE
     Route: 065
  217. PANADOL [Suspect]
     Active Substance: ACETAMINOPHEN
     Indication: Ill-defined disorder
     Route: 065
  218. PANADOL [Suspect]
     Active Substance: ACETAMINOPHEN
     Dosage: 500 MILLIGRAM, 4 DOSE PER 1 D
     Route: 065
  219. HYDROCORTISONE [Suspect]
     Active Substance: HYDROCORTISONE
     Indication: Colitis ulcerative
     Route: 065
  220. HYDROCORTISONE [Suspect]
     Active Substance: HYDROCORTISONE
     Route: 065
     Dates: start: 201807
  221. HYDROCORTISONE [Suspect]
     Active Substance: HYDROCORTISONE
     Route: 065
  222. HYDROCORTISONE [Suspect]
     Active Substance: HYDROCORTISONE
     Route: 065
  223. ESCITALOPRAM OXALATE [Suspect]
     Active Substance: ESCITALOPRAM OXALATE
     Indication: Product used for unknown indication
     Route: 065
  224. ROSUVASTATIN CALCIUM [Suspect]
     Active Substance: ROSUVASTATIN CALCIUM
     Indication: Blood cholesterol increased
     Route: 065
  225. ROSUVASTATIN CALCIUM [Suspect]
     Active Substance: ROSUVASTATIN CALCIUM
     Route: 065
  226. XELJANZ [Concomitant]
     Active Substance: TOFACITINIB CITRATE
     Indication: Product used for unknown indication
     Dosage: 10 MILLIGRAM, 2 DOSE PER 1 D
     Route: 048
  227. XELJANZ [Concomitant]
     Active Substance: TOFACITINIB CITRATE
     Dosage: 5 MILLIGRAM, 2 DOSE PER 1D
     Route: 048
  228. XELJANZ [Concomitant]
     Active Substance: TOFACITINIB CITRATE
     Dosage: 10 MILLIGRAM, 1 DOSE PER 1D
     Route: 048
  229. XELJANZ [Concomitant]
     Active Substance: TOFACITINIB CITRATE
     Dosage: 5 MILLIGRAM, 1 DOSE PER 1D
     Route: 048
  230. FESOTERODINE FUMARATE [Concomitant]
     Active Substance: FESOTERODINE FUMARATE
     Indication: Product used for unknown indication
     Route: 065
  231. METHOTREXATE [Concomitant]
     Active Substance: METHOTREXATE
     Indication: Colitis ulcerative
     Route: 065
     Dates: start: 20090101, end: 20160101
  232. METHOTREXATE [Concomitant]
     Active Substance: METHOTREXATE
     Route: 065
     Dates: start: 201709, end: 201709
  233. METHOTREXATE [Concomitant]
     Active Substance: METHOTREXATE
     Route: 065
  234. METHOTREXATE [Concomitant]
     Active Substance: METHOTREXATE
     Route: 065
     Dates: start: 201709
  235. XELJANZ [Concomitant]
     Active Substance: TOFACITINIB CITRATE
     Indication: Colitis ulcerative
     Dosage: 5 MILLIGRAM, BID
     Route: 048
  236. XELJANZ [Concomitant]
     Active Substance: TOFACITINIB CITRATE
     Dosage: 10 MILLIGRAM, 2 DOSE PER 1 D
     Route: 048
  237. XELJANZ [Concomitant]
     Active Substance: TOFACITINIB CITRATE
     Dosage: 10 MILLIGRAM, 1 DOSE PER 1D
     Route: 048
  238. XELJANZ [Concomitant]
     Active Substance: TOFACITINIB CITRATE
     Dosage: 5 MILLIGRAM, 1 DOSE PER 1D
     Route: 048
  239. MOVICOL [Concomitant]
     Active Substance: POLYETHYLENE GLYCOL 3350\POTASSIUM CHLORIDE\SODIUM BICARBONATE\SODIUM CHLORIDE
     Indication: Product used for unknown indication
     Route: 065
  240. BETNOVATE [Concomitant]
     Active Substance: BETAMETHASONE
     Indication: Product used for unknown indication
     Route: 065
  241. LATANOPROST [Concomitant]
     Active Substance: LATANOPROST
     Indication: Product used for unknown indication
     Route: 065
  242. POLYETHYLENE GLYCOL 3350\POTASSIUM CHLORIDE\SODIUM BICARBONATE\SODIUM [Concomitant]
     Active Substance: POLYETHYLENE GLYCOL 3350\POTASSIUM CHLORIDE\SODIUM BICARBONATE\SODIUM CHLORIDE
     Indication: Product used for unknown indication
     Route: 065
  243. PREGABALIN [Concomitant]
     Active Substance: PREGABALIN
     Indication: Ill-defined disorder
     Route: 065
  244. CALCIUM CARBONATE\CHOLECALCIFEROL [Concomitant]
     Active Substance: CALCIUM CARBONATE\CHOLECALCIFEROL
     Indication: Product used for unknown indication
     Route: 065
  245. GAVISCON [Concomitant]
     Active Substance: ALUMINUM HYDROXIDE\MAGNESIUM CARBONATE
     Indication: Product used for unknown indication
     Route: 065
  246. Zerobase [Concomitant]
     Indication: Product used for unknown indication
     Route: 065
  247. Rennie [Concomitant]
     Indication: Product used for unknown indication
     Route: 065
  248. ATORVASTATIN [Concomitant]
     Active Substance: ATORVASTATIN
     Indication: Product used for unknown indication
     Route: 065
  249. NITROFURANTOIN [Concomitant]
     Active Substance: NITROFURANTOIN
     Indication: Ill-defined disorder
     Route: 065
  250. TETRAHYDROZOLINE HYDROCHLORIDE [Concomitant]
     Active Substance: TETRAHYDROZOLINE HYDROCHLORIDE
     Indication: Colitis ulcerative
     Route: 065
  251. LATANOPROST [Concomitant]
     Active Substance: LATANOPROST
     Indication: Crohn^s disease
     Route: 065
  252. LATANOPROST [Concomitant]
     Active Substance: LATANOPROST
     Indication: Colitis ulcerative
  253. LANSOPRAZOLE [Concomitant]
     Active Substance: LANSOPRAZOLE
     Indication: Ill-defined disorder
     Route: 065
  254. PRAVASTATIN [Concomitant]
     Active Substance: PRAVASTATIN
     Indication: Ill-defined disorder
     Route: 065
  255. CITALOPRAM [Concomitant]
     Active Substance: CITALOPRAM
     Indication: Ill-defined disorder
     Route: 065
  256. EMPAGLIFLOZIN [Concomitant]
     Active Substance: EMPAGLIFLOZIN
     Indication: Ill-defined disorder
     Route: 065
  257. AMLODIPINE [Concomitant]
     Active Substance: AMLODIPINE BESYLATE
     Indication: Product used for unknown indication
     Route: 065
  258. RIVAROXABAN [Concomitant]
     Active Substance: RIVAROXABAN
     Indication: Ill-defined disorder
     Route: 065
  259. RAMIPRIL [Concomitant]
     Active Substance: RAMIPRIL
     Indication: Ill-defined disorder
     Route: 065
  260. POLYETHYLENE GLYCOLS [Concomitant]
     Active Substance: POLYETHYLENE GLYCOLS
     Indication: Product used for unknown indication
     Route: 065
  261. FOLIC ACID [Concomitant]
     Active Substance: FOLIC ACID
     Indication: Ill-defined disorder
     Route: 065
  262. DORZOLAMIDE HYDROCHLORIDE [Concomitant]
     Active Substance: DORZOLAMIDE HYDROCHLORIDE
     Indication: Ill-defined disorder
     Route: 065
  263. TAMSULOSIN HYDROCHLORIDE [Concomitant]
     Active Substance: TAMSULOSIN HYDROCHLORIDE
     Indication: Ill-defined disorder
     Route: 065
  264. BISOPROLOL [Concomitant]
     Active Substance: BISOPROLOL
     Indication: Dyscalculia
     Route: 065
  265. Calcium Carbonate/Sodium Alginate/Sodium Bicarbonate [Concomitant]
     Indication: Product used for unknown indication
     Route: 065
  266. CLOBETASONE BUTYRATE [Concomitant]
     Active Substance: CLOBETASONE BUTYRATE
     Indication: Ill-defined disorder
     Route: 065
  267. POLYETHYLENE GLYCOL 3350 [Concomitant]
     Active Substance: POLYETHYLENE GLYCOL 3350
     Indication: Ill-defined disorder
     Route: 065
  268. Alginic Acid, NaHCO3 Al(OH)3, Magnesium Trisilicate [Concomitant]
     Indication: Product used for unknown indication
     Route: 065
  269. Calcium Carbonate/Vitamin [Concomitant]
     Indication: Product used for unknown indication
     Route: 065
  270. ACETAMINOPHEN [Concomitant]
     Active Substance: ACETAMINOPHEN
     Indication: Product used for unknown indication
     Route: 065
  271. MINERAL OIL [Concomitant]
     Active Substance: MINERAL OIL
     Indication: Ill-defined disorder
     Route: 065
  272. NAPHAZOLINE HYDROCHLORIDE [Concomitant]
     Active Substance: NAPHAZOLINE HYDROCHLORIDE
     Indication: Ill-defined disorder
     Route: 065
  273. ROSUVASTATIN [Concomitant]
     Active Substance: ROSUVASTATIN
     Indication: Blood cholesterol increased
     Route: 065
  274. ROSUVASTATIN [Concomitant]
     Active Substance: ROSUVASTATIN
     Route: 065
  275. TOFACITINIB CITRATE [Concomitant]
     Active Substance: TOFACITINIB CITRATE
     Indication: Ill-defined disorder
     Route: 065
  276. PARAFFIN [Concomitant]
     Active Substance: PARAFFIN
     Indication: Product used for unknown indication
     Route: 065
  277. MINERAL OIL [Concomitant]
     Active Substance: MINERAL OIL
     Indication: Ill-defined disorder
     Route: 065

REACTIONS (55)
  - Bronchiectasis [Not Recovered/Not Resolved]
  - Frequent bowel movements [Not Recovered/Not Resolved]
  - Haematochezia [Not Recovered/Not Resolved]
  - Steroid dependence [Not Recovered/Not Resolved]
  - Stress [Not Recovered/Not Resolved]
  - Impaired quality of life [Not Recovered/Not Resolved]
  - Colitis ulcerative [Not Recovered/Not Resolved]
  - Colitis ulcerative [Not Recovered/Not Resolved]
  - Condition aggravated [Not Recovered/Not Resolved]
  - Loss of personal independence in daily activities [Not Recovered/Not Resolved]
  - Loss of personal independence in daily activities [Not Recovered/Not Resolved]
  - Impaired work ability [Not Recovered/Not Resolved]
  - Deep vein thrombosis [Not Recovered/Not Resolved]
  - Abdominal discomfort [Not Recovered/Not Resolved]
  - Arthritis [Not Recovered/Not Resolved]
  - Burns second degree [Not Recovered/Not Resolved]
  - Cardiac murmur [Not Recovered/Not Resolved]
  - Catarrh [Not Recovered/Not Resolved]
  - Cerebrovascular accident [Not Recovered/Not Resolved]
  - COVID-19 [Not Recovered/Not Resolved]
  - Depression [Not Recovered/Not Resolved]
  - Dysgeusia [Not Recovered/Not Resolved]
  - Eczema [Not Recovered/Not Resolved]
  - Gingival pain [Not Recovered/Not Resolved]
  - Hypopnoea [Not Recovered/Not Resolved]
  - Migraine [Not Recovered/Not Resolved]
  - Nightmare [Not Recovered/Not Resolved]
  - Pain [Not Recovered/Not Resolved]
  - Pain in extremity [Not Recovered/Not Resolved]
  - Parosmia [Not Recovered/Not Resolved]
  - Pulmonary embolism [Not Recovered/Not Resolved]
  - Swollen tongue [Not Recovered/Not Resolved]
  - Systemic lupus erythematosus [Not Recovered/Not Resolved]
  - Tubulointerstitial nephritis [Not Recovered/Not Resolved]
  - Weight decreased [Not Recovered/Not Resolved]
  - Rectal haemorrhage [Not Recovered/Not Resolved]
  - Palpitations [Not Recovered/Not Resolved]
  - Somnolence [Not Recovered/Not Resolved]
  - Confusional state [Not Recovered/Not Resolved]
  - Fatigue [Not Recovered/Not Resolved]
  - Tinnitus [Not Recovered/Not Resolved]
  - Vertigo [Not Recovered/Not Resolved]
  - Pyrexia [Not Recovered/Not Resolved]
  - Rhinitis [Not Recovered/Not Resolved]
  - Headache [Not Recovered/Not Resolved]
  - Rash [Not Recovered/Not Resolved]
  - Product use in unapproved indication [Not Recovered/Not Resolved]
  - Inappropriate schedule of product administration [Not Recovered/Not Resolved]
  - Alcohol poisoning [Not Recovered/Not Resolved]
  - Adverse drug reaction [Not Recovered/Not Resolved]
  - Intentional product use issue [Not Recovered/Not Resolved]
  - Medication error [Not Recovered/Not Resolved]
  - Off label use [Not Recovered/Not Resolved]
  - Accidental overdose [Not Recovered/Not Resolved]
  - Drug ineffective [Not Recovered/Not Resolved]

NARRATIVE: CASE EVENT DATE: 20080101
